FAERS Safety Report 14967207 (Version 1)
Quarter: 2018Q2

REPORT INFORMATION
  Report Type: Spontaneous
  Country: DK (occurrence: DK)
  Receive Date: 20180604
  Receipt Date: 20180604
  Transmission Date: 20180711
  Serious: Yes (Other)
  Sender: FDA-Public Use
  Company Number: DK-CHEPLA-C20180272

PATIENT

DRUGS (2)
  1. ARSENIC TRIOXIDE (ATO) [Suspect]
     Active Substance: ARSENIC TRIOXIDE
     Indication: ACUTE PROMYELOCYTIC LEUKAEMIA
  2. ALL-TRANS-RETINOIC ACID (ATRA) [Suspect]
     Active Substance: TRETINOIN
     Indication: ACUTE PROMYELOCYTIC LEUKAEMIA

REACTIONS (1)
  - Leukaemia recurrent [Unknown]
